FAERS Safety Report 11570100 (Version 12)
Quarter: 2018Q2

REPORT INFORMATION
  Report Type: Spontaneous
  Country: US (occurrence: US)
  Receive Date: 20150929
  Receipt Date: 20180402
  Transmission Date: 20180711
  Serious: Yes (Hospitalization, Other)
  Sender: FDA-Public Use
  Company Number: US-PFIZER INC-2015320750

PATIENT
  Age: 75 Year
  Sex: Female
  Weight: 72.12 kg

DRUGS (14)
  1. XELJANZ [Suspect]
     Active Substance: TOFACITINIB CITRATE
     Indication: RHEUMATOID ARTHRITIS
     Dosage: 5 MG, 2X/DAY (ONE IN MORNING AND ONE IN EVENING)
     Dates: start: 2015
  2. FLECAINIDE ACETATE. [Concomitant]
     Active Substance: FLECAINIDE ACETATE
     Indication: CARDIAC DISORDER
     Dosage: 100 MG, 2X/DAY
     Route: 048
  3. SAVAYSA [Concomitant]
     Active Substance: EDOXABAN TOSYLATE
     Indication: ANTICOAGULANT THERAPY
     Dosage: 60 MG, 1X/DAY
     Route: 048
     Dates: start: 2015, end: 20170724
  4. ESTRADIOL. [Concomitant]
     Active Substance: ESTRADIOL
     Indication: HORMONE REPLACEMENT THERAPY
     Dosage: 1 MG, 1X/DAY (EVERY MORNING)
     Dates: start: 1975
  5. METOPROLOL. [Concomitant]
     Active Substance: METOPROLOL
     Indication: HYPERTENSION
     Dosage: 50 MG, 2X/DAY
  6. NEXIUM 24HR [Concomitant]
     Active Substance: ESOMEPRAZOLE MAGNESIUM
     Indication: GASTROOESOPHAGEAL REFLUX DISEASE
     Dosage: UNK, AS NEEDED
  7. LEVOTHYROXINE. [Concomitant]
     Active Substance: LEVOTHYROXINE
     Indication: HYPOTHYROIDISM
     Dosage: 112 UG, 1X/DAY
     Route: 048
     Dates: start: 1965
  8. XELJANZ [Suspect]
     Active Substance: TOFACITINIB CITRATE
     Dosage: 5 MG, 2X/DAY
     Dates: start: 20160205
  9. FENTANYL. [Concomitant]
     Active Substance: FENTANYL
     Dosage: 21.002 UG, 1X/DAY
  10. XELJANZ [Suspect]
     Active Substance: TOFACITINIB CITRATE
     Dosage: 5 MG, 2X/DAY
     Route: 048
  11. VITAMIN D [Concomitant]
     Active Substance: CHOLECALCIFEROL
     Indication: VITAMIN D DECREASED
     Dosage: 50000 IU, 2X/WEEK
     Dates: start: 2015
  12. XELJANZ [Suspect]
     Active Substance: TOFACITINIB CITRATE
     Dosage: 5 MG, 2X/DAY
     Route: 048
  13. FENTANYL. [Concomitant]
     Active Substance: FENTANYL
     Indication: SPINAL OPERATION
     Dosage: UNK (AT 17 POINT SOMETHING MCG)
     Dates: start: 201011
  14. FUROSEMIDE. [Concomitant]
     Active Substance: FUROSEMIDE
     Indication: FLUID RETENTION
     Dosage: 40 MG, 1X/DAY
     Route: 048

REACTIONS (14)
  - Chronic obstructive pulmonary disease [Unknown]
  - Rhinorrhoea [Recovering/Resolving]
  - Nasal congestion [Recovering/Resolving]
  - Pneumonia [Unknown]
  - Neck pain [Not Recovered/Not Resolved]
  - Osteoarthritis [Unknown]
  - Pain [Unknown]
  - Bronchitis [Not Recovered/Not Resolved]
  - Upper respiratory tract congestion [Recovering/Resolving]
  - Ear infection [Not Recovered/Not Resolved]
  - Hypersensitivity [Recovering/Resolving]
  - Lacrimation increased [Recovering/Resolving]
  - Nausea [Unknown]
  - Cough [Not Recovered/Not Resolved]

NARRATIVE: CASE EVENT DATE: 2015
